FAERS Safety Report 21594818 (Version 1)
Quarter: 2022Q4

REPORT INFORMATION
  Report Type: Spontaneous
  Country: US (occurrence: None)
  Receive Date: 20221114
  Receipt Date: 20221114
  Transmission Date: 20230112
  Serious: Yes (Other)
  Sender: FDA-Public Use
  Company Number: None

PATIENT
  Age: 54 Year
  Sex: Female

DRUGS (1)
  1. PAXLOVID [Suspect]
     Active Substance: NIRMATRELVIR\RITONAVIR
     Dates: start: 20221108, end: 20221109

REACTIONS (3)
  - Throat tightness [None]
  - Throat irritation [None]
  - Tinnitus [None]

NARRATIVE: CASE EVENT DATE: 20221109
